FAERS Safety Report 10232749 (Version 3)
Quarter: 2014Q3

REPORT INFORMATION
  Report Type: Spontaneous
  Country: US (occurrence: None)
  Receive Date: 20140610
  Receipt Date: 20140811
  Transmission Date: 20150326
  Serious: Yes (Hospitalization, Other)
  Sender: FDA-Public Use
  Company Number: 2014AP003286

PATIENT
  Age: 85 Year
  Sex: Female

DRUGS (15)
  1. CARVEDILOL. [Suspect]
     Active Substance: CARVEDILOL
     Indication: CARDIAC DISORDER
     Route: 048
     Dates: start: 20051115
  2. PAXIL CR [Suspect]
     Active Substance: PAROXETINE HYDROCHLORIDE
     Dosage: 12.5 UNK
     Dates: start: 20050411, end: 20080110
  3. PAROXETINE HYDROCHLORIDE. [Suspect]
     Active Substance: PAROXETINE HYDROCHLORIDE
     Indication: PRODUCT USED FOR UNKNOWN INDICATION
     Dates: start: 20051104, end: 20080110
  4. ADVAIR HFA [Suspect]
     Active Substance: FLUTICASONE PROPIONATE\SALMETEROL XINAFOATE
     Indication: PRODUCT USED FOR UNKNOWN INDICATION
     Dates: start: 20070727
  5. POTASSIUM (POTASSIUM) [Concomitant]
     Active Substance: POTASSIUM
  6. ACETAMINOPHEN W/HYDROCODONE [Suspect]
     Active Substance: ACETAMINOPHEN\HYDROCODONE
     Indication: PAIN
  7. LASIX [Concomitant]
     Active Substance: FUROSEMIDE
  8. COREG [Suspect]
     Active Substance: CARVEDILOL
     Indication: HYPERTENSION
     Route: 048
     Dates: start: 20050412, end: 20051115
  9. ROCEPHIN [Suspect]
     Active Substance: CEFTRIAXONE SODIUM
     Indication: INFECTION
     Dates: start: 20140630
  10. CARVEDILOL. [Suspect]
     Active Substance: CARVEDILOL
     Indication: CARDIAC FAILURE CONGESTIVE
     Route: 048
     Dates: start: 20051115
  11. COREG [Suspect]
     Active Substance: CARVEDILOL
     Indication: CARDIAC FAILURE CONGESTIVE
     Route: 048
     Dates: start: 20050412, end: 20051115
  12. NEXIUM [Concomitant]
     Active Substance: ESOMEPRAZOLE MAGNESIUM
  13. VITAMINS NOS (VITAMINS NOS) [Concomitant]
     Active Substance: VITAMINS
  14. PAXIL CR [Suspect]
     Active Substance: PAROXETINE HYDROCHLORIDE
     Indication: PRODUCT USED FOR UNKNOWN INDICATION
     Dosage: 12.5 UNK
     Dates: start: 20050411, end: 20080110
  15. CARVEDILOL. [Suspect]
     Active Substance: CARVEDILOL
     Indication: HYPERTENSION
     Route: 048
     Dates: start: 20051115

REACTIONS (28)
  - Pain in extremity [None]
  - Gait disturbance [None]
  - Back pain [None]
  - Cystitis [None]
  - Cardiac operation [None]
  - Arterial occlusive disease [None]
  - Secretion discharge [None]
  - Hernia repair [None]
  - Urinary tract infection [None]
  - Activities of daily living impaired [None]
  - Stent placement [None]
  - Colon operation [None]
  - Nerve injury [None]
  - Drug ineffective [None]
  - Hernia [None]
  - Staphylococcal infection [None]
  - Pollakiuria [None]
  - Dizziness [None]
  - Head injury [None]
  - Fall [None]
  - Gastrointestinal infection [None]
  - Oropharyngeal pain [None]
  - Angiopathy [None]
  - Multiple fractures [None]
  - Hospitalisation [None]
  - Abasia [None]
  - Blood pressure increased [None]
  - Contusion [None]

NARRATIVE: CASE EVENT DATE: 2012
